FAERS Safety Report 6427107-1 (Version None)
Quarter: 2009Q4

REPORT INFORMATION
  Report Type: 
  Country: None (occurrence: None)
  Receive Date: 20091026
  Receipt Date: 20090701
  Transmission Date: 20100525
  Serious: No
  Sender: FDA-Public Use
  Company Number: FPI-09-FIR-0188

PATIENT
  Age: 68 Year
  Sex: Male

DRUGS (6)
  1. FIRMAGON [Suspect]
     Indication: PROSTATE CANCER
     Dosage: 240MG (2 INJ X 120MG)
     Dates: start: 20090630
  2. BACTRIM (TRIMETHOPRIM AND SULFAMETHOXAZOLE) [Concomitant]
  3. AVODART [Concomitant]
  4. FLOMAX [Concomitant]
  5. TRAMADOL HCL [Concomitant]
  6. HYDROCODONE BITARTRATE [Concomitant]

REACTIONS (3)
  - INJECTION SITE ERYTHEMA [None]
  - INJECTION SITE PAIN [None]
  - INJECTION SITE SWELLING [None]
